FAERS Safety Report 19500536 (Version 3)
Quarter: 2021Q4

REPORT INFORMATION
  Report Type: Report from Study
  Country: US (occurrence: US)
  Receive Date: 20210707
  Receipt Date: 20211201
  Transmission Date: 20220303
  Serious: Yes (Other)
  Sender: FDA-Public Use
  Company Number: US-UCBSA-2021031382

PATIENT
  Sex: Female
  Weight: 102.1 kg

DRUGS (2)
  1. CERTOLIZUMAB PEGOL [Suspect]
     Active Substance: CERTOLIZUMAB PEGOL
     Indication: Crohn^s disease
     Dosage: 200 MILLIGRAM
     Route: 058
     Dates: start: 20210614, end: 20210614
  2. CERTOLIZUMAB PEGOL [Suspect]
     Active Substance: CERTOLIZUMAB PEGOL
     Dosage: 400 MILLIGRAM
     Route: 058
     Dates: start: 2021, end: 2021

REACTIONS (3)
  - Anaphylactic reaction [Recovered/Resolved]
  - Product use issue [Unknown]
  - Hypersensitivity [Recovered/Resolved]

NARRATIVE: CASE EVENT DATE: 20210101
